FAERS Safety Report 7946462-4 (Version None)
Quarter: 2011Q4

REPORT INFORMATION
  Report Type: 
  Country: None (occurrence: None)
  Receive Date: 20111129
  Receipt Date: 20111122
  Transmission Date: 20120403
  Serious: Yes (Other)
  Sender: FDA-Public Use
  Company Number: PT-ABBOTT-11P-130-0877072-00

PATIENT
  Age: 15 Month
  Sex: Female

DRUGS (2)
  1. TOPIRAMATE [Concomitant]
     Indication: PRODUCT USED FOR UNKNOWN INDICATION
  2. DEPAKENE [Suspect]
     Indication: EPILEPSY
     Dosage: DAILY DOSE: 170MG, ORAL SOLUTION
     Route: 048
     Dates: start: 20110419

REACTIONS (4)
  - PRODUCT QUALITY ISSUE [None]
  - DRUG INEFFECTIVE [None]
  - CONVULSION [None]
  - DRUG LEVEL BELOW THERAPEUTIC [None]
